FAERS Safety Report 8051947-9 (Version None)
Quarter: 2012Q1

REPORT INFORMATION
  Report Type: 
  Country: None (occurrence: None)
  Receive Date: 20120111
  Receipt Date: 20111227
  Transmission Date: 20120608
  Serious: Yes (Other)
  Sender: FDA-Public Use
  Company Number: 11-103

PATIENT
  Age: 45 Year
  Sex: Male

DRUGS (1)
  1. VENLAFAXINE HCL [Suspect]
     Indication: DEPRESSION
     Dosage: 750 MG; QD, 150 MG; QD

REACTIONS (6)
  - PSYCHOMOTOR HYPERACTIVITY [None]
  - LOGORRHOEA [None]
  - DEPRESSION [None]
  - ENERGY INCREASED [None]
  - MANIA [None]
  - SLEEP DISORDER [None]
